FAERS Safety Report 5120087-0 (Version None)
Quarter: 2006Q3

REPORT INFORMATION
  Report Type: 
  Country: None (occurrence: None)
  Receive Date: 20060929
  Receipt Date: 20060915
  Transmission Date: 20061208
  Serious: Yes (Other)
  Sender: FDA-Public Use
  Company Number: 6025832F

PATIENT
  Age: 47 Year
  Sex: Female

DRUGS (1)
  1. NIASPAN [Suspect]
     Dosage: 500 MG QD PO
     Route: 048
     Dates: start: 20060822, end: 20060822

REACTIONS (6)
  - DYSPHAGIA [None]
  - DYSPNOEA [None]
  - ERYTHEMA [None]
  - FEELING HOT [None]
  - OEDEMA PERIPHERAL [None]
  - SWELLING FACE [None]
